FAERS Safety Report 4887554-6 (Version None)
Quarter: 2006Q1

REPORT INFORMATION
  Report Type: 
  Country: None (occurrence: None)
  Receive Date: 20060118
  Receipt Date: 20060104
  Transmission Date: 20060701
  Serious: Yes (Hospitalization)
  Sender: FDA-Public Use
  Company Number: DE200601000536

PATIENT
  Age: 32 Year
  Sex: Male

DRUGS (2)
  1. ZYPREXA [Suspect]
     Indication: PSYCHOTIC DISORDER
     Dosage: 30 MG, DAILY (1/D), UNK
     Dates: start: 20041122, end: 20051122
  2. ABILIFY [Concomitant]

REACTIONS (5)
  - CONDITION AGGRAVATED [None]
  - PRESCRIBED OVERDOSE [None]
  - PSYCHOTIC DISORDER [None]
  - URINARY RETENTION [None]
  - URINE FLOW DECREASED [None]
